FAERS Safety Report 4466960-8 (Version None)
Quarter: 2004Q4

REPORT INFORMATION
  Report Type: 
  Country: None (occurrence: None)
  Receive Date: 20041006
  Receipt Date: 20040805
  Transmission Date: 20050328
  Serious: Yes (Hospitalization)
  Sender: FDA-Public Use
  Company Number: 200417763GDDC

PATIENT
  Age: 82 Year
  Sex: Female

DRUGS (2)
  1. FLUDEX [Suspect]
     Indication: ESSENTIAL HYPERTENSION
     Dosage: DOSE: UNK
     Route: 048
     Dates: start: 20040401, end: 20040601
  2. ATENOLOL [Concomitant]
     Dosage: DOSE: UNK

REACTIONS (4)
  - HYPONATRAEMIA [None]
  - INAPPROPRIATE ANTIDIURETIC HORMONE SECRETION [None]
  - LOSS OF CONSCIOUSNESS [None]
  - MALAISE [None]
